FAERS Safety Report 15363051 (Version 1)
Quarter: 2018Q3

REPORT INFORMATION
  Report Type: Spontaneous
  Country: CN (occurrence: CN)
  Receive Date: 20180907
  Receipt Date: 20180907
  Transmission Date: 20181010
  Serious: Yes (Other)
  Sender: FDA-Public Use
  Company Number: CN-PFIZER INC-2018360673

PATIENT
  Age: 30 Year
  Sex: Male
  Weight: 58 kg

DRUGS (2)
  1. SOLU?MEDROL [Suspect]
     Active Substance: METHYLPREDNISOLONE SODIUM SUCCINATE
     Indication: INFLAMMATION
     Dosage: 40 MG, 1X/DAY
     Route: 041
     Dates: start: 20180707, end: 20180717
  2. COMBIVENT [Suspect]
     Active Substance: ALBUTEROL SULFATE\IPRATROPIUM BROMIDE
     Indication: INFLAMMATION
     Dosage: 5 ML, 3X/DAY
     Dates: start: 20180707, end: 20180719

REACTIONS (2)
  - Palpitations [Recovering/Resolving]
  - Heart rate increased [Recovering/Resolving]

NARRATIVE: CASE EVENT DATE: 20180715
